FAERS Safety Report 24653471 (Version 1)
Quarter: 2024Q4

REPORT INFORMATION
  Report Type: Spontaneous
  Country: US (occurrence: None)
  Receive Date: 20241121
  Receipt Date: 20241121
  Transmission Date: 20250114
  Serious: Yes (Hospitalization)
  Sender: Public
  Company Number: None

PATIENT
  Age: 15 Year
  Sex: Female
  Weight: 56.25 kg

DRUGS (4)
  1. XOLAIR [Suspect]
     Active Substance: OMALIZUMAB
     Indication: Food allergy
     Dosage: OTHER QUANTITY : 1 INJECTION(S);?OTHER FREQUENCY : ONCE MONTHLY;?
     Route: 058
     Dates: start: 20241106, end: 20241106
  2. XOLAIR [Suspect]
     Active Substance: OMALIZUMAB
     Indication: Anaphylactic reaction
  3. ZOLMITRIPTAN [Concomitant]
     Active Substance: ZOLMITRIPTAN
  4. ZYRTEC [Concomitant]
     Active Substance: CETIRIZINE HYDROCHLORIDE

REACTIONS (12)
  - Brain fog [None]
  - Influenza like illness [None]
  - Arthralgia [None]
  - Pyrexia [None]
  - Amnesia [None]
  - Rash [None]
  - Pruritus [None]
  - Asthenia [None]
  - Diarrhoea [None]
  - Vomiting [None]
  - Nausea [None]
  - Post procedural complication [None]

NARRATIVE: CASE EVENT DATE: 20241106
